FAERS Safety Report 6808192-1 (Version None)
Quarter: 2010Q2

REPORT INFORMATION
  Report Type: 
  Country: None (occurrence: None)
  Receive Date: 20100629
  Receipt Date: 20090408
  Transmission Date: 20101027
  Serious: No
  Sender: FDA-Public Use
  Company Number: US-PFIZER INC-2009198252

PATIENT
  Sex: Male

DRUGS (1)
  1. VIAGRA [Suspect]
     Indication: ERECTILE DYSFUNCTION
     Dosage: 200 MG, AS NEEDED
     Dates: start: 20090408

REACTIONS (3)
  - INTENTIONAL DRUG MISUSE [None]
  - PENILE PAIN [None]
  - PENIS DISORDER [None]
